FAERS Safety Report 17590706 (Version 1)
Quarter: 2020Q1

REPORT INFORMATION
  Report Type: Spontaneous
  Country: US (occurrence: US)
  Receive Date: 20200325
  Receipt Date: 20200325
  Transmission Date: 20200409
  Serious: No
  Sender: FDA-Public Use
  Company Number: None

PATIENT
  Age: 64 Year
  Sex: Female

DRUGS (1)
  1. ACTEMRA ACTPEN [Suspect]
     Active Substance: TOCILIZUMAB
     Dosage: ?          OTHER DOSE:162;?
     Route: 058
     Dates: start: 20190925

REACTIONS (5)
  - Inflammation [None]
  - Condition aggravated [None]
  - Ankle operation [None]
  - Therapy cessation [None]
  - Foot operation [None]

NARRATIVE: CASE EVENT DATE: 20200325
